FAERS Safety Report 18416348 (Version 1)
Quarter: 2020Q4

REPORT INFORMATION
  Report Type: Spontaneous
  Country: ZA (occurrence: ZA)
  Receive Date: 20201022
  Receipt Date: 20201022
  Transmission Date: 20210114
  Serious: Yes (Other)
  Sender: FDA-Public Use
  Company Number: ZA-PFIZER INC-2020407122

PATIENT
  Age: 39 Year
  Sex: Male

DRUGS (8)
  1. RYZODEG 70/30 [Suspect]
     Active Substance: INSULIN ASPART\INSULIN DEGLUDEC
     Dosage: 34U MANE 30U NOCTE
  2. LORIEN [Suspect]
     Active Substance: FLUOXETINE HYDROCHLORIDE
     Dosage: 20 MG, 2X/DAY
  3. OLANZAPINE. [Suspect]
     Active Substance: OLANZAPINE
     Dosage: 15 MG NOCTE
  4. LAMOTRIGINE. [Suspect]
     Active Substance: LAMOTRIGINE
     Dosage: 200 MG, 2X/DAY
  5. ASPAVOR [Suspect]
     Active Substance: ATORVASTATIN
     Dosage: UNK
  6. TEGRETOL XR [Suspect]
     Active Substance: CARBAMAZEPINE
     Dosage: 400 MG, 2X/DAY
  7. ETOMINE [Suspect]
     Active Substance: CLOTHIAPINE
     Dosage: 40 MG, 1X/DAY
  8. BROMAZEPAM [Suspect]
     Active Substance: BROMAZEPAM
     Dosage: 6 MG 2DAY

REACTIONS (3)
  - Blood alkaline phosphatase increased [Unknown]
  - Lipids increased [Unknown]
  - Gamma-glutamyltransferase increased [Unknown]
